FAERS Safety Report 12266272 (Version 1)
Quarter: 2016Q2

REPORT INFORMATION
  Report Type: Spontaneous
  Country: US (occurrence: None)
  Receive Date: 20160413
  Receipt Date: 20160413
  Transmission Date: 20160815
  Serious: Yes (Death, Hospitalization)
  Sender: FDA-Public Use
  Company Number: None

PATIENT
  Age: 18 Year
  Sex: Female
  Weight: 41.2 kg

DRUGS (5)
  1. PREDNISONE. [Suspect]
     Active Substance: PREDNISONE
     Dates: end: 20160311
  2. DAUNORUBICIN [Suspect]
     Active Substance: DAUNORUBICIN
     Dates: end: 20160304
  3. CYTARABINE. [Suspect]
     Active Substance: CYTARABINE
     Dates: end: 20160216
  4. ONCASPAR [Suspect]
     Active Substance: PEGASPARGASE
     Dates: end: 20160216
  5. METHOTREXATE [Suspect]
     Active Substance: METHOTREXATE
     Dates: end: 20160311

REACTIONS (18)
  - Sinusitis aspergillus [None]
  - Tracheal haemorrhage [None]
  - Postictal state [None]
  - Loss of consciousness [None]
  - Disorientation [None]
  - Pleural effusion [None]
  - Pseudomonas infection [None]
  - Somnolence [None]
  - Dyspnoea [None]
  - Pulmonary haemorrhage [None]
  - Hypertension [None]
  - Soft tissue infection [None]
  - Acute respiratory distress syndrome [None]
  - Hypotension [None]
  - Bradycardia [None]
  - Bronchopulmonary aspergillosis [None]
  - Seizure [None]
  - Oxygen saturation decreased [None]

NARRATIVE: CASE EVENT DATE: 20160308
